FAERS Safety Report 5941348-9 (Version None)
Quarter: 2008Q4

REPORT INFORMATION
  Report Type: 
  Country: None (occurrence: None)
  Receive Date: 20081103
  Receipt Date: 20081022
  Transmission Date: 20090506
  Serious: Yes (Other)
  Sender: FDA-Public Use
  Company Number: 2008BI012339

PATIENT
  Age: 38 Year
  Sex: Female

DRUGS (6)
  1. TYSABRI [Suspect]
     Indication: RELAPSING-REMITTING MULTIPLE SCLEROSIS
     Dosage: 300 MG, QM; IV
     Dates: start: 20080305, end: 20080403
  2. TYSABRI [Suspect]
     Indication: RELAPSING-REMITTING MULTIPLE SCLEROSIS
     Dosage: 300 MG, QM; IV
     Dates: start: 20080730
  3. . [Concomitant]
  4. INTERFERON [Concomitant]
  5. NOVANTRONE [Concomitant]
  6. CORTICOSTEROIDS [Concomitant]

REACTIONS (4)
  - ALANINE AMINOTRANSFERASE INCREASED [None]
  - ASPARTATE AMINOTRANSFERASE INCREASED [None]
  - LIVER DISORDER [None]
  - NEUTROPENIA [None]
